FAERS Safety Report 6792623-X (Version None)
Quarter: 2010Q2

REPORT INFORMATION
  Report Type: 
  Country: None (occurrence: None)
  Receive Date: 20100624
  Receipt Date: 20081013
  Transmission Date: 20101027
  Serious: Yes (Life-Threatening, Hospitalization, Other)
  Sender: FDA-Public Use
  Company Number: US-PFIZER INC-2008072025

PATIENT
  Sex: Male
  Weight: 80 kg

DRUGS (3)
  1. SUTENT [Suspect]
     Indication: NEOPLASM MALIGNANT
     Dates: start: 20070601
  2. ALBUTEROL [Concomitant]
  3. COLACE [Concomitant]

REACTIONS (1)
  - LARGE INTESTINE PERFORATION [None]
